FAERS Safety Report 24130940 (Version 1)
Quarter: 2024Q3

REPORT INFORMATION
  Report Type: Report from Study
  Country: US (occurrence: None)
  Receive Date: 20240724
  Receipt Date: 20240724
  Transmission Date: 20241017
  Serious: Yes (Other)
  Sender: ASTRAZENECA
  Company Number: 2021A434248

PATIENT
  Sex: Female
  Weight: 37.2 kg

DRUGS (1)
  1. KOSELUGO [Suspect]
     Active Substance: SELUMETINIB
     Indication: Malignant nervous system neoplasm
     Route: 048

REACTIONS (2)
  - Jaw disorder [Unknown]
  - Mass [Unknown]
